FAERS Safety Report 19585023 (Version 2)
Quarter: 2021Q3

REPORT INFORMATION
  Report Type: Spontaneous
  Country: BR (occurrence: BR)
  Receive Date: 20210721
  Receipt Date: 20210818
  Transmission Date: 20211014
  Serious: Yes (Other)
  Sender: FDA-Public Use
  Company Number: BR-ABBVIE-21K-020-3865127-00

PATIENT
  Age: 51 Year
  Sex: Female
  Weight: 64 kg

DRUGS (7)
  1. HUMIRA [Suspect]
     Active Substance: ADALIMUMAB
     Indication: ANKYLOSING SPONDYLITIS
     Route: 058
     Dates: start: 202001
  2. FRONTAL [Concomitant]
     Active Substance: ALPRAZOLAM
     Indication: ANXIETY
     Dosage: START DATE TEXT :BEFORE 2016?FREQUENCY TEXT :AT NIGHT
     Route: 048
  3. MIOSAN [Concomitant]
     Active Substance: CYCLOBENZAPRINE
     Indication: PRODUCT USED FOR UNKNOWN INDICATION
     Dosage: UNSPECIFIED DOSE
  4. HUMIRA [Suspect]
     Active Substance: ADALIMUMAB
     Route: 058
     Dates: start: 20210702
  5. PRISTIQ EXTENDED?RELEASE [Concomitant]
     Active Substance: DESVENLAFAXINE SUCCINATE
     Indication: DEPRESSION
     Dosage: START DATE TEXT : BEFORE 2016?FREQUENCY TEXT : IN THE MORNING
     Route: 048
  6. HUMIRA [Suspect]
     Active Substance: ADALIMUMAB
     Indication: ANKYLOSING SPONDYLITIS
     Route: 058
     Dates: start: 202106, end: 2021
  7. ARFLEX [Concomitant]
     Active Substance: NIMESULIDE
     Indication: ARTHRITIS
     Dosage: 1 CAPSULE A DAY, SPORADICALLY
     Route: 048
     Dates: start: 2018

REACTIONS (7)
  - Bursitis [Recovering/Resolving]
  - Oral herpes [Recovered/Resolved]
  - Tendon rupture [Recovering/Resolving]
  - Tendon disorder [Recovering/Resolving]
  - Ankylosing spondylitis [Recovering/Resolving]
  - Tendonitis [Recovering/Resolving]
  - Pain [Recovering/Resolving]

NARRATIVE: CASE EVENT DATE: 2021
